FAERS Safety Report 7332721-5 (Version None)
Quarter: 2011Q1

REPORT INFORMATION
  Report Type: 
  Country: None (occurrence: None)
  Receive Date: 20110304
  Receipt Date: 20110223
  Transmission Date: 20110831
  Serious: Yes (Hospitalization)
  Sender: FDA-Public Use
  Company Number: NL-ELI_LILLY_AND_COMPANY-NL201102006622

PATIENT
  Sex: Male
  Weight: 78 kg

DRUGS (2)
  1. GEMCITABINE HYDROCHLORIDE [Suspect]
     Indication: NON-SMALL CELL LUNG CANCER
     Dosage: 4900 MG, 3 WEEKLY (DAY 1 AND 8)
     Route: 042
     Dates: start: 20100106
  2. CISPLATIN [Suspect]
     Indication: NON-SMALL CELL LUNG CANCER
     Dosage: 145 MG, 3 WEEKLY
     Route: 042
     Dates: start: 20100106

REACTIONS (1)
  - EMPYEMA [None]
